FAERS Safety Report 12134434 (Version 1)
Quarter: 2016Q1

REPORT INFORMATION
  Report Type: Spontaneous
  Country: US (occurrence: US)
  Receive Date: 20160301
  Receipt Date: 20160301
  Transmission Date: 20160526
  Serious: Yes (Other)
  Sender: FDA-Public Use
  Company Number: CHPA2016US002520

PATIENT
  Age: 88 Year
  Sex: Female

DRUGS (2)
  1. KERI UNKNOWN [Suspect]
     Active Substance: LANOLIN\MINERAL OIL
     Indication: DRY SKIN PROPHYLAXIS
     Route: 061
  2. KERI ORIGINAL [Suspect]
     Active Substance: LANOLIN\MINERAL OIL
     Indication: DRY SKIN PROPHYLAXIS
     Dosage: UNK
     Route: 061
     Dates: start: 1991

REACTIONS (3)
  - Dry skin [Unknown]
  - Wrist fracture [Recovering/Resolving]
  - Drug ineffective [Unknown]

NARRATIVE: CASE EVENT DATE: 20151223
